FAERS Safety Report 15751958 (Version 2)
Quarter: 2019Q1

REPORT INFORMATION
  Report Type: Spontaneous
  Country: CO (occurrence: CO)
  Receive Date: 20181221
  Receipt Date: 20190308
  Transmission Date: 20190417
  Serious: Yes (Other)
  Sender: FDA-Public Use
  Company Number: CO-PFIZER INC-2018254411

PATIENT
  Age: 45 Year
  Sex: Female

DRUGS (1)
  1. XELJANZ [Suspect]
     Active Substance: TOFACITINIB CITRATE
     Indication: RHEUMATOID ARTHRITIS
     Dosage: 5 MG, 2X/DAY
     Route: 048
     Dates: start: 201703, end: 20181118

REACTIONS (14)
  - Swelling [Unknown]
  - Tracheal oedema [Unknown]
  - Acne [Not Recovered/Not Resolved]
  - Pharyngeal oedema [Unknown]
  - Headache [Unknown]
  - Mydriasis [Unknown]
  - Postoperative wound infection [Unknown]
  - Fatigue [Not Recovered/Not Resolved]
  - Herpes zoster [Unknown]
  - Photophobia [Unknown]
  - Product administration error [Unknown]
  - Oral herpes [Recovered/Resolved with Sequelae]
  - Vision blurred [Unknown]
  - Dysphagia [Unknown]

NARRATIVE: CASE EVENT DATE: 201805
